FAERS Safety Report 11926938 (Version 1)
Quarter: 2016Q1

REPORT INFORMATION
  Report Type: Spontaneous
  Country: US (occurrence: US)
  Receive Date: 20160119
  Receipt Date: 20160119
  Transmission Date: 20160526
  Serious: No
  Sender: FDA-Public Use
  Company Number: US-INVAGEN PHARMACEUTICALS, INC.-1046596

PATIENT
  Age: 33 Year
  Sex: Female
  Weight: 65.91 kg

DRUGS (6)
  1. LYRICA [Concomitant]
     Active Substance: PREGABALIN
  2. BUSPIRONE [Concomitant]
     Active Substance: BUSPIRONE HYDROCHLORIDE
  3. ZOLOFT [Concomitant]
     Active Substance: SERTRALINE HYDROCHLORIDE
  4. GABAPENTIN. [Suspect]
     Active Substance: GABAPENTIN
     Indication: FIBROMYALGIA
     Route: 048
  5. XANAX [Concomitant]
     Active Substance: ALPRAZOLAM
  6. IMITREX [Concomitant]
     Active Substance: SUMATRIPTAN SUCCINATE

REACTIONS (4)
  - Dyskinesia [Unknown]
  - Tongue spasm [Unknown]
  - Drug ineffective [Unknown]
  - Pain [Unknown]
